FAERS Safety Report 5698335-8 (Version None)
Quarter: 2008Q2

REPORT INFORMATION
  Report Type: 
  Country: None (occurrence: None)
  Receive Date: 20080408
  Receipt Date: 20080402
  Transmission Date: 20081010
  Serious: Yes (Hospitalization)
  Sender: FDA-Public Use
  Company Number: US-PFIZER INC-2008029409

PATIENT

DRUGS (1)
  1. ZIPRASIDONE (CAPS) [Suspect]

REACTIONS (1)
  - GASTRIC BYPASS [None]
